FAERS Safety Report 13096391 (Version 1)
Quarter: 2017Q1

REPORT INFORMATION
  Report Type: Spontaneous
  Country: US (occurrence: US)
  Receive Date: 20170106
  Receipt Date: 20170106
  Transmission Date: 20170428
  Serious: Yes (Life-Threatening, Disabling)
  Sender: FDA-Public Use
  Company Number: None

PATIENT
  Age: 66 Year
  Sex: Female
  Weight: 69.92 kg

DRUGS (5)
  1. GLUCOSAMINE [Concomitant]
     Active Substance: GLUCOSAMINE
  2. ARIPIPRAZOLE 20 M.G. [Suspect]
     Active Substance: ARIPIPRAZOLE
     Indication: PSYCHOTIC DISORDER
     Dosage: 1 PILL ONE TIME A DAY, MOUTH?
     Route: 048
     Dates: start: 20161003, end: 20161216
  3. ASPRINE [Concomitant]
  4. CALCIUM [Concomitant]
     Active Substance: CALCIUM
  5. CHONDROITIN MSM [Concomitant]

REACTIONS (3)
  - Suicidal ideation [None]
  - Drug hypersensitivity [None]
  - Agitation [None]

NARRATIVE: CASE EVENT DATE: 20161012
